FAERS Safety Report 9045015 (Version 1)
Quarter: 2013Q1

REPORT INFORMATION
  Report Type: Report from Study
  Country: US (occurrence: US)
  Receive Date: 20130130
  Receipt Date: 20130130
  Transmission Date: 20140127
  Serious: No
  Sender: FDA-Public Use
  Company Number: US-ABBOTT-12P-163-0958315-00

PATIENT
  Age: 33 None
  Sex: Male

DRUGS (3)
  1. HUMIRA 40 MG/0.8 ML PEN [Suspect]
     Indication: CROHN^S DISEASE
     Route: 058
     Dates: start: 201204, end: 20120510
  2. MESALAMINE [Concomitant]
     Indication: ENEMA ADMINISTRATION
  3. MULTIVITAMIN [Concomitant]
     Indication: VITAMIN SUPPLEMENTATION

REACTIONS (4)
  - Scratch [Not Recovered/Not Resolved]
  - Tooth infection [Recovered/Resolved]
  - Injection site induration [Unknown]
  - Paraesthesia [Unknown]
